FAERS Safety Report 4563102-5 (Version None)
Quarter: 2005Q1

REPORT INFORMATION
  Report Type: 
  Country: None (occurrence: None)
  Receive Date: 20050125
  Receipt Date: 20050111
  Transmission Date: 20050727
  Serious: No
  Sender: FDA-Public Use
  Company Number: 05H-062-0286528-00

PATIENT
  Age: 15 Month
  Sex: Male

DRUGS (1)
  1. HEPARIN SODIUM [Suspect]

REACTIONS (5)
  - ASCITES [None]
  - HEPARIN-INDUCED THROMBOCYTOPENIA [None]
  - PERICARDIAL EFFUSION [None]
  - PERITONITIS [None]
  - PLEURAL EFFUSION [None]
